FAERS Safety Report 5084373-5 (Version None)
Quarter: 2006Q3

REPORT INFORMATION
  Report Type: 
  Country: None (occurrence: None)
  Receive Date: 20060816
  Receipt Date: 20060731
  Transmission Date: 20061208
  Serious: Yes (Other)
  Sender: FDA-Public Use
  Company Number: TRP_0833_2006

PATIENT
  Age: 55 Year
  Sex: Female
  Weight: 83.9154 kg

DRUGS (8)
  1. RIBASPHERE [Suspect]
     Indication: HEPATITIS B
     Dosage: DF UNK PO
     Route: 048
     Dates: start: 20050926
  2. RIBASPHERE [Suspect]
     Indication: HEPATITIS C
     Dosage: DF UNK PO
     Route: 048
     Dates: start: 20050926
  3. PEG-INTRON [Suspect]
     Indication: HEPATITIS B
     Dosage: DF UNK SC
     Route: 058
     Dates: start: 20050926
  4. PEG-INTRON [Suspect]
     Indication: HEPATITIS C
     Dosage: DF UNK SC
     Route: 058
     Dates: start: 20050926
  5. EVISTA [Concomitant]
  6. HYDROCHLOROTHIAZIDE [Concomitant]
  7. LEVOXYL [Concomitant]
  8. PREVACID [Concomitant]

REACTIONS (12)
  - AGITATION [None]
  - BALANCE DISORDER [None]
  - BONE PAIN [None]
  - CONTUSION [None]
  - DIARRHOEA [None]
  - FALL [None]
  - FATIGUE [None]
  - JAUNDICE [None]
  - MEMORY IMPAIRMENT [None]
  - MUSCLE SPASMS [None]
  - VOMITING [None]
  - WEIGHT DECREASED [None]
